FAERS Safety Report 19279231 (Version 1)
Quarter: 2021Q2

REPORT INFORMATION
  Report Type: Spontaneous
  Country: CN (occurrence: CN)
  Receive Date: 20210520
  Receipt Date: 20210520
  Transmission Date: 20210717
  Serious: Yes (Other)
  Sender: FDA-Public Use
  Company Number: CN-PFIZER INC-2021531226

PATIENT
  Age: 20 Year
  Sex: Female

DRUGS (1)
  1. SERTRALINE HCL [Suspect]
     Active Substance: SERTRALINE HYDROCHLORIDE
     Indication: ANXIETY
     Dosage: 600 MG, ONCE A DAY
     Route: 048
     Dates: start: 20210504, end: 20210504

REACTIONS (5)
  - Asthenia [Recovering/Resolving]
  - Intentional overdose [Unknown]
  - Vomiting [Recovering/Resolving]
  - Dizziness [Unknown]
  - Fatigue [Recovering/Resolving]

NARRATIVE: CASE EVENT DATE: 20210504
